FAERS Safety Report 7584525-6 (Version None)
Quarter: 2011Q2

REPORT INFORMATION
  Report Type: 
  Country: None (occurrence: None)
  Receive Date: 20110630
  Receipt Date: 20110626
  Transmission Date: 20111010
  Serious: Yes (Other)
  Sender: FDA-Public Use
  Company Number: BE-TEVA-169530ISR

PATIENT
  Age: 52 Year
  Sex: Female

DRUGS (7)
  1. POTASSIUM CANRENOATE [Concomitant]
     Dosage: 100 MILLIGRAM;
     Dates: start: 20000101
  2. LISINOPRIL AND HYDROCHLOROTHIAZIDE [Concomitant]
     Dosage: LISINOPRIL 20 MG/DAY PLUS HYDROCHLOROTHIAZIDE 12.5 MGLDAY
     Dates: start: 20050101
  3. EBASTINE [Concomitant]
     Dosage: 10 MILLIGRAM;
     Dates: start: 20030101
  4. METHYLPREDNISOLONE [Concomitant]
     Indication: MULTIPLE SCLEROSIS RELAPSE
     Dosage: 1 GRAM;
     Dates: start: 20070910
  5. MICRONISED PURIFIED FLAVONOID FRACTION [Concomitant]
     Indication: PERIPHERAL VASCULAR DISORDER
     Dates: start: 19880101
  6. COPAXONE [Suspect]
     Indication: MULTIPLE SCLEROSIS
     Route: 058
     Dates: start: 20070715, end: 20080112
  7. DESLORATADINE [Concomitant]
     Indication: RHINITIS ALLERGIC
     Dosage: 5 MILLIGRAM;
     Dates: start: 20060101

REACTIONS (1)
  - HEPATITIS ACUTE [None]
